FAERS Safety Report 5380308-6 (Version None)
Quarter: 2007Q3

REPORT INFORMATION
  Report Type: 
  Country: None (occurrence: None)
  Receive Date: 20070706
  Receipt Date: 20070516
  Transmission Date: 20080115
  Serious: No
  Sender: FDA-Public Use
  Company Number: A0651576A

PATIENT
  Age: 54 Year
  Sex: Female

DRUGS (7)
  1. TYKERB [Suspect]
     Indication: BREAST CANCER
     Dosage: 5TAB PER DAY
     Route: 048
     Dates: start: 20070512
  2. POTASSIUM CHLORIDE [Concomitant]
  3. VITAMIN B6 [Concomitant]
  4. XELODA [Concomitant]
  5. UNKNOWN MEDICATION [Concomitant]
  6. TOPROL-XL [Concomitant]
  7. WARFARIN SODIUM [Concomitant]

REACTIONS (5)
  - DERMATITIS CONTACT [None]
  - DIARRHOEA [None]
  - FATIGUE [None]
  - RASH [None]
  - RASH PRURITIC [None]
